FAERS Safety Report 6484528-9 (Version None)
Quarter: 2009Q4

REPORT INFORMATION
  Report Type: 
  Country: None (occurrence: None)
  Receive Date: 20091209
  Receipt Date: 20091201
  Transmission Date: 20100525
  Serious: Yes (Hospitalization)
  Sender: FDA-Public Use
  Company Number: PHHY2009GB49426

PATIENT

DRUGS (1)
  1. LOPRESSOR [Suspect]
     Indication: HYPERTENSION
     Dosage: 25 MG, BID

REACTIONS (2)
  - HYPOTENSION [None]
  - SURGERY [None]
